FAERS Safety Report 8223039-7 (Version None)
Quarter: 2012Q1

REPORT INFORMATION
  Report Type: 
  Country: None (occurrence: None)
  Receive Date: 20120321
  Receipt Date: 20120306
  Transmission Date: 20120608
  Serious: Yes (Death, Hospitalization)
  Sender: FDA-Public Use
  Company Number: US-ASTRAZENECA-2012SE17724

PATIENT
  Age: 55 Year
  Sex: Male

DRUGS (17)
  1. FOSCARNET [Suspect]
     Route: 042
  2. PREDNISOLONE [Concomitant]
  3. FOSCARNET [Suspect]
     Indication: ENCEPHALITIS CYTOMEGALOVIRUS
     Route: 042
  4. GANCICLOVIR [Concomitant]
     Route: 042
  5. ANTI-THYMOCYTE GLOBULIN NOS [Concomitant]
     Indication: MYELODYSPLASTIC SYNDROME
  6. FOSCARNET [Suspect]
     Indication: CYTOMEGALOVIRUS VIRAEMIA
     Route: 042
  7. MYCOPHENOLATE MOFETIL [Concomitant]
     Indication: PROPHYLAXIS AGAINST GRAFT VERSUS HOST DISEASE
  8. CYCLOSPORINE [Concomitant]
     Indication: PROPHYLAXIS AGAINST GRAFT VERSUS HOST DISEASE
  9. FOSCARNET [Suspect]
     Route: 042
  10. GANCICLOVIR [Concomitant]
     Route: 042
  11. GANCICLOVIR [Concomitant]
     Route: 042
  12. GANCICLOVIR [Concomitant]
     Route: 042
  13. FLUDARABINE PHOSPHATE [Concomitant]
     Indication: MYELODYSPLASTIC SYNDROME
  14. IMMUNOGLOBULINS [Concomitant]
     Indication: PROPHYLAXIS AGAINST GRAFT VERSUS HOST DISEASE
  15. BUSULFAN [Concomitant]
     Indication: MYELODYSPLASTIC SYNDROME
  16. GANCICLOVIR [Concomitant]
     Route: 042
  17. CIDOFOVIR [Concomitant]

REACTIONS (7)
  - GRAFT VERSUS HOST DISEASE IN INTESTINE [None]
  - NEPHROPATHY TOXIC [None]
  - WEIGHT DECREASED [None]
  - BRAIN STEM INFARCTION [None]
  - NEUROLOGICAL DECOMPENSATION [None]
  - DEATH [None]
  - LETHARGY [None]
